FAERS Safety Report 6252197-9 (Version None)
Quarter: 2009Q2

REPORT INFORMATION
  Report Type: 
  Country: None (occurrence: None)
  Receive Date: 20090629
  Receipt Date: 20090616
  Transmission Date: 20091009
  Serious: Yes (Death, Hospitalization)
  Sender: FDA-Public Use
  Company Number: 2009EU002372

PATIENT
  Age: 55 Year
  Sex: Female

DRUGS (2)
  1. TACROLIMUS [Suspect]
     Indication: LIVER TRANSPLANT
     Dosage: /D
  2. PREDNISOLONE [Suspect]
     Indication: LIVER TRANSPLANT
     Dosage: /D

REACTIONS (4)
  - COMPLICATIONS OF TRANSPLANTED LIVER [None]
  - LYMPHADENOPATHY [None]
  - SEPTIC SHOCK [None]
  - TUBERCULOSIS GASTROINTESTINAL [None]
